FAERS Safety Report 5428235-X (Version None)
Quarter: 2007Q3

REPORT INFORMATION
  Report Type: 
  Country: None (occurrence: None)
  Receive Date: 20070828
  Receipt Date: 20070823
  Transmission Date: 20080115
  Serious: Yes (Death)
  Sender: FDA-Public Use
  Company Number: US-PFIZER INC-2007069817

PATIENT
  Sex: Male
  Weight: 85.2 kg

DRUGS (12)
  1. SUTENT [Suspect]
     Indication: PROSTATE CANCER METASTATIC
     Route: 048
     Dates: start: 20070517, end: 20070816
  2. TAXOTERE [Suspect]
     Indication: PROSTATE CANCER METASTATIC
     Route: 042
     Dates: start: 20070517, end: 20070809
  3. CALCIUM WITH VITAMIN D [Concomitant]
     Route: 048
  4. CELEBREX [Concomitant]
     Route: 048
  5. VICODIN [Concomitant]
     Route: 048
  6. LEXAPRO [Concomitant]
     Route: 048
  7. LIPITOR [Concomitant]
     Route: 048
  8. LUPRON [Concomitant]
     Route: 048
  9. NEXIUM [Concomitant]
     Route: 048
  10. OMEGA 3 [Concomitant]
     Route: 048
  11. PREDNISONE TAB [Concomitant]
     Route: 048
  12. ZOMETA [Concomitant]
     Route: 042

REACTIONS (1)
  - DEATH [None]
